FAERS Safety Report 8438621-1 (Version None)
Quarter: 2012Q2

REPORT INFORMATION
  Report Type: 
  Country: None (occurrence: None)
  Receive Date: 20120615
  Receipt Date: 20120611
  Transmission Date: 20120825
  Serious: No
  Sender: FDA-Public Use
  Company Number: US-PFIZER INC-2012140475

PATIENT
  Age: 84 Year
  Sex: Male

DRUGS (3)
  1. VIAGRA [Suspect]
     Dosage: 50 MG, UNK
  2. VIAGRA [Suspect]
     Dosage: UNK
  3. VIAGRA [Suspect]
     Dosage: 100 MG, UNK

REACTIONS (1)
  - DRUG INEFFECTIVE [None]
